FAERS Safety Report 24851924 (Version 1)
Quarter: 2025Q1

REPORT INFORMATION
  Report Type: Spontaneous
  Country: US (occurrence: US)
  Receive Date: 20250116
  Receipt Date: 20250116
  Transmission Date: 20250409
  Serious: No
  Sender: PFIZER
  Company Number: US-PFIZER INC-PV202500006427

PATIENT
  Age: 60 Year
  Sex: Female

DRUGS (30)
  1. XELJANZ [Suspect]
     Active Substance: TOFACITINIB CITRATE
  2. ORENCIA [Concomitant]
     Active Substance: ABATACEPT
  3. ACTEMRA [Concomitant]
     Active Substance: TOCILIZUMAB
  4. KEVZARA [Concomitant]
     Active Substance: SARILUMAB
  5. ENBREL [Concomitant]
     Active Substance: ETANERCEPT
  6. REMICADE [Concomitant]
     Active Substance: INFLIXIMAB
  7. RASUVO [Concomitant]
     Active Substance: METHOTREXATE SODIUM
  8. ARAVA [Concomitant]
     Active Substance: LEFLUNOMIDE
  9. OLUMIANT [Concomitant]
     Active Substance: BARICITINIB
  10. SIMPONI [Concomitant]
     Active Substance: GOLIMUMAB
  11. HUMIRA [Concomitant]
     Active Substance: ADALIMUMAB
  12. DULOXETINE [Concomitant]
     Active Substance: DULOXETINE
  13. LIDOCAINE [Concomitant]
     Active Substance: LIDOCAINE
  14. HYDROXYCHLOROQUINE [Concomitant]
     Active Substance: HYDROXYCHLOROQUINE
  15. DICLOFENAC [Concomitant]
     Active Substance: DICLOFENAC
  16. SULFASALAZINE [Concomitant]
     Active Substance: SULFASALAZINE
  17. MIRALAX [Concomitant]
     Active Substance: POLYETHYLENE GLYCOL 3350
  18. VITAMIN D3 [Concomitant]
     Active Substance: CHOLECALCIFEROL
  19. TRAMADOL [Concomitant]
     Active Substance: TRAMADOL
  20. FAMOTIDINE [Concomitant]
     Active Substance: FAMOTIDINE
  21. HYDROXYZINE HYDROCHLORIDE [Concomitant]
     Active Substance: HYDROXYZINE HYDROCHLORIDE
  22. ACETAMINOPHEN [Concomitant]
     Active Substance: ACETAMINOPHEN
  23. METFORMIN [Concomitant]
     Active Substance: METFORMIN HYDROCHLORIDE
  24. ASPIRIN [Concomitant]
     Active Substance: ASPIRIN
  25. PRILOSEC [Concomitant]
     Active Substance: OMEPRAZOLE MAGNESIUM
  26. ZOLOFT [Concomitant]
     Active Substance: SERTRALINE HYDROCHLORIDE
  27. BENAZEPRIL [Concomitant]
     Active Substance: BENAZEPRIL HYDROCHLORIDE
  28. OSCAL [CALCIUM CARBONATE] [Concomitant]
  29. MEDIZINE [CHLORPROMAZINE] [Concomitant]
  30. CRESTOR [Concomitant]
     Active Substance: ROSUVASTATIN CALCIUM

REACTIONS (1)
  - Pruritus [Unknown]
